FAERS Safety Report 14232391 (Version 1)
Quarter: 2017Q4

REPORT INFORMATION
  Report Type: Report from Study
  Country: DE (occurrence: CH)
  Receive Date: 20171128
  Receipt Date: 20171128
  Transmission Date: 20180321
  Serious: Yes (Other)
  Sender: FDA-Public Use
  Company Number: PHHY2017CH156560

PATIENT
  Sex: Female
  Weight: 49 kg

DRUGS (7)
  1. AMLODIPINE [Suspect]
     Active Substance: AMLODIPINE BESYLATE
     Indication: CARDIAC FAILURE CHRONIC
     Dosage: 2.5 MG, QD
     Route: 048
     Dates: start: 20160601
  2. AMLODIPINE [Suspect]
     Active Substance: AMLODIPINE BESYLATE
     Indication: BLOOD PRESSURE MANAGEMENT
  3. LISITRIL [Suspect]
     Active Substance: LISINOPRIL
     Indication: CARDIAC FAILURE CHRONIC
     Dosage: 20 MG, QD
     Route: 048
     Dates: start: 20160601
  4. LISITRIL [Suspect]
     Active Substance: LISINOPRIL
     Indication: MOBILITY DECREASED
  5. LISITRIL [Suspect]
     Active Substance: LISINOPRIL
     Indication: BLOOD PRESSURE MANAGEMENT
  6. AMLODIPINE [Suspect]
     Active Substance: AMLODIPINE BESYLATE
     Indication: MOBILITY DECREASED
  7. XARELTO [Concomitant]
     Active Substance: RIVAROXABAN
     Indication: PRODUCT USED FOR UNKNOWN INDICATION
     Dosage: 20 MG, QD
     Route: 048
     Dates: start: 20151018

REACTIONS (2)
  - Angina pectoris [Unknown]
  - Chest discomfort [Unknown]

NARRATIVE: CASE EVENT DATE: 20171120
